FAERS Safety Report 9149890 (Version 2)
Quarter: 2013Q2

REPORT INFORMATION
  Report Type: Spontaneous
  Country: NZ (occurrence: NZ)
  Receive Date: 20130308
  Receipt Date: 20130420
  Transmission Date: 20140414
  Serious: Yes (Hospitalization, Other)
  Sender: FDA-Public Use
  Company Number: NZ-B.I. PHARMACEUTICALS,INC./RIDGEFIELD-2013-AU-00229AU

PATIENT
  Age: 83 Year
  Sex: Female
  Weight: 65 kg

DRUGS (6)
  1. PRADAXA [Suspect]
     Indication: ATRIAL FIBRILLATION
     Dosage: 220 MG
     Dates: start: 20121123, end: 20121126
  2. PROPRANOLOL [Concomitant]
     Dosage: 80 MG
     Dates: start: 20121031
  3. CILAZAPRIL [Concomitant]
     Dosage: 5 MG
     Dates: start: 20121031
  4. FELODIPINE [Concomitant]
     Dosage: 5 MG
     Dates: start: 20121031
  5. PANADOL [Concomitant]
     Dosage: 4 G
     Dates: start: 20121031
  6. BEZAFIBRATE [Concomitant]
     Dosage: 400 MG
     Dates: start: 20121031

REACTIONS (3)
  - Cerebrovascular accident [Unknown]
  - Dyspepsia [Recovered/Resolved]
  - Migraine [Unknown]
